FAERS Safety Report 6106927-7 (Version None)
Quarter: 2009Q1

REPORT INFORMATION
  Report Type: 
  Country: None (occurrence: None)
  Receive Date: 20090309
  Receipt Date: 20090304
  Transmission Date: 20090719
  Serious: Yes (Other)
  Sender: FDA-Public Use
  Company Number: US-RANBAXY-2009US-21753

PATIENT

DRUGS (4)
  1. ISOTRETINOIN [Suspect]
     Indication: ACNE
     Dosage: 10 MG, BID
     Route: 048
     Dates: start: 20080201, end: 20081001
  2. ISOTRETINOIN [Suspect]
     Dosage: 30 MG, BID
     Route: 048
     Dates: start: 20080201, end: 20081001
  3. ISOTRETINOIN [Suspect]
     Dosage: 40 MG, QD
     Route: 048
     Dates: start: 20080201, end: 20081001
  4. ISOTRETINOIN [Suspect]
     Dosage: 40 MG, BID
     Route: 048
     Dates: start: 20080201, end: 20081001

REACTIONS (5)
  - BUNDLE BRANCH BLOCK RIGHT [None]
  - CARDIOMEGALY [None]
  - CHEST PAIN [None]
  - SINUS BRADYCARDIA [None]
  - TACHYCARDIA [None]
